FAERS Safety Report 26124401 (Version 2)
Quarter: 2025Q4

REPORT INFORMATION
  Report Type: Spontaneous
  Country: RU (occurrence: RU)
  Receive Date: 20251205
  Receipt Date: 20251212
  Transmission Date: 20260117
  Serious: Yes (Other)
  Sender: NOVARTIS
  Company Number: RU-002147023-NVSC2025RU185693

PATIENT
  Age: 73 Year
  Sex: Female

DRUGS (2)
  1. CARBAMAZEPINE [Suspect]
     Active Substance: CARBAMAZEPINE
     Indication: Trigeminal neuralgia
     Dosage: UNK
     Route: 065
  2. AMITRIPTYLINE [Suspect]
     Active Substance: AMITRIPTYLINE
     Indication: Trigeminal neuralgia
     Dosage: UNK
     Route: 065

REACTIONS (4)
  - Psychotic disorder [Recovering/Resolving]
  - Cognitive disorder [Recovering/Resolving]
  - Emotional disorder [Recovering/Resolving]
  - Drug ineffective [Recovered/Resolved]
